FAERS Safety Report 4630283-4 (Version None)
Quarter: 2005Q2

REPORT INFORMATION
  Report Type: 
  Country: None (occurrence: None)
  Receive Date: 20050406
  Receipt Date: 20050322
  Transmission Date: 20051028
  Serious: Yes (Death)
  Sender: FDA-Public Use
  Company Number: 10651

PATIENT
  Sex: Female

DRUGS (3)
  1. METHOTREXATE [Suspect]
     Dosage: 15 MG
     Dates: start: 20011110
  2. ETANERCEPT [Suspect]
     Dosage: 25 MG SC
     Route: 058
     Dates: start: 20020311, end: 20020601
  3. LEFLUNOMIDE [Suspect]
     Dates: start: 20020601

REACTIONS (1)
  - UROSEPSIS [None]
